FAERS Safety Report 7421126-4 (Version None)
Quarter: 2011Q2

REPORT INFORMATION
  Report Type: 
  Country: None (occurrence: None)
  Receive Date: 20110418
  Receipt Date: 20110412
  Transmission Date: 20111010
  Serious: Yes (Other)
  Sender: FDA-Public Use
  Company Number: US-PFIZER INC-2011080984

PATIENT
  Sex: Female
  Weight: 74 kg

DRUGS (1)
  1. CELEBREX [Suspect]
     Dosage: UNK

REACTIONS (4)
  - CHEST PAIN [None]
  - NAUSEA [None]
  - DYSPNOEA [None]
  - ASTHENIA [None]
